FAERS Safety Report 26210754 (Version 1)
Quarter: 2025Q4

REPORT INFORMATION
  Report Type: Spontaneous
  Country: AU (occurrence: AU)
  Receive Date: 20251230
  Receipt Date: 20251230
  Transmission Date: 20260117
  Serious: Yes (Other)
  Sender: JOHNSON AND JOHNSON
  Company Number: AU-JNJFOC-20251229919

PATIENT
  Age: 58 Year
  Sex: Female

DRUGS (1)
  1. TOPAMAX [Suspect]
     Active Substance: TOPIRAMATE
     Indication: Product used for unknown indication
     Dosage: FIRST DOSE 12.5MG AT NIGHT THEN ANOTHER DOSE IN THE MORNING (TOTAL 2 DOSES)
     Route: 048

REACTIONS (1)
  - Vitreous detachment [Recovered/Resolved]
